FAERS Safety Report 19995139 (Version 1)
Quarter: 2021Q4

REPORT INFORMATION
  Report Type: Spontaneous
  Country: US (occurrence: US)
  Receive Date: 20211025
  Receipt Date: 20211025
  Transmission Date: 20220303
  Serious: Yes (Hospitalization)
  Sender: FDA-Public Use
  Company Number: None

PATIENT
  Age: 80 Year
  Sex: Female

DRUGS (1)
  1. INQOVI [Suspect]
     Active Substance: CEDAZURIDINE\DECITABINE
     Indication: Myelodysplastic syndrome
     Dosage: ?          OTHER DOSE:35-100 MG;OTHER FREQUENCY:SEE B.6(PAGE2);
     Route: 048
     Dates: start: 20210813

REACTIONS (3)
  - Cystitis [None]
  - Sepsis [None]
  - Full blood count decreased [None]

NARRATIVE: CASE EVENT DATE: 20210801
